FAERS Safety Report 23840097 (Version 2)
Quarter: 2025Q2

REPORT INFORMATION
  Report Type: Spontaneous
  Country: US (occurrence: US)
  Receive Date: 20240510
  Receipt Date: 20250515
  Transmission Date: 20250717
  Serious: No
  Sender: UCB
  Company Number: US-UCBSA-2024002635

PATIENT
  Age: 53 Year
  Sex: Male

DRUGS (1)
  1. CIMZIA [Suspect]
     Active Substance: CERTOLIZUMAB PEGOL
     Indication: Psoriasis
     Dosage: 400 MILLIGRAM, EV 2 WEEKS(QOW) (SAME DOSE TAKEN AS MAINTENANCE DOSING)
     Route: 058
     Dates: start: 202009

REACTIONS (2)
  - Inappropriate schedule of product administration [Unknown]
  - Off label use [Unknown]

NARRATIVE: CASE EVENT DATE: 20210921
